FAERS Safety Report 25649624 (Version 1)
Quarter: 2025Q3

REPORT INFORMATION
  Report Type: Spontaneous
  Country: US (occurrence: None)
  Receive Date: 20250805
  Receipt Date: 20250805
  Transmission Date: 20251021
  Serious: Yes (Disabling)
  Sender: FDA-CTU
  Company Number: None

PATIENT
  Age: 11 Year
  Sex: Female
  Weight: 76.5 kg

DRUGS (5)
  1. XOLAIR [Suspect]
     Active Substance: OMALIZUMAB
     Indication: Food allergy
     Dosage: FREQUENCY : EVERY OTHER WEEK;?STRENGTH:  300MG/2ML
     Route: 058
     Dates: start: 20250310, end: 20250505
  2. NAPROXEN [Concomitant]
     Active Substance: NAPROXEN
  3. GABAPENTIN [Concomitant]
     Active Substance: GABAPENTIN
  4. XYZAL [Concomitant]
     Active Substance: LEVOCETIRIZINE DIHYDROCHLORIDE
  5. VITAMIN D [Concomitant]
     Active Substance: VITAMIN D NOS

REACTIONS (5)
  - Arthralgia [None]
  - Pain in extremity [None]
  - Gait inability [None]
  - Muscular weakness [None]
  - Nerve injury [None]

NARRATIVE: CASE EVENT DATE: 20250411
